FAERS Safety Report 21883539 (Version 2)
Quarter: 2023Q1

REPORT INFORMATION
  Report Type: Spontaneous
  Country: IN (occurrence: IN)
  Receive Date: 20230119
  Receipt Date: 20230124
  Transmission Date: 20230418
  Serious: Yes (Other)
  Sender: FDA-Public Use
  Company Number: IN-CIPLA LTD.-2023IN00218

PATIENT
  Sex: Female

DRUGS (4)
  1. RIZATRIPTAN BENZOATE [Suspect]
     Active Substance: RIZATRIPTAN BENZOATE
     Indication: Migraine
     Dosage: UNK
     Route: 048
  2. RIZATRIPTAN BENZOATE [Suspect]
     Active Substance: RIZATRIPTAN BENZOATE
     Dosage: 10 MILLIGRAM, PRN
     Route: 048
  3. RIZATRIPTAN BENZOATE [Suspect]
     Active Substance: RIZATRIPTAN BENZOATE
     Dosage: 10 MILLIGRAM, PRN
     Route: 048
     Dates: start: 202212, end: 20230107
  4. DOLO 650 [Concomitant]
     Indication: Migraine
     Dosage: 650 MG, MAXIMUM 2 TIMES A DAY
     Route: 065

REACTIONS (5)
  - Hallucination, visual [Recovered/Resolved]
  - Drug ineffective [Unknown]
  - Suspected counterfeit product [Unknown]
  - Confusional state [Recovered/Resolved]
  - Dizziness [Recovered/Resolved]

NARRATIVE: CASE EVENT DATE: 20221201
